FAERS Safety Report 7477552-0 (Version None)
Quarter: 2011Q2

REPORT INFORMATION
  Report Type: 
  Country: None (occurrence: None)
  Receive Date: 20110511
  Receipt Date: 20110511
  Transmission Date: 20111010
  Serious: Yes (Other)
  Sender: FDA-Public Use
  Company Number: None

PATIENT
  Age: 68 Year
  Sex: Male
  Weight: 74.1 kg

DRUGS (15)
  1. FAMOTIDINE [Concomitant]
  2. GABAPENTIN [Concomitant]
  3. LORAZEPAM [Concomitant]
  4. ONDANSETRON [Concomitant]
  5. VANCOMYCIN [Suspect]
     Indication: PNEUMONIA
  6. HALOPERIDOL [Concomitant]
  7. DUONEB NEBULIZER [Concomitant]
  8. VANCOMYCIN [Suspect]
     Indication: PNEUMONIA
     Dosage: 1250MG Q12 HOURS IV PIGGYBACK
     Route: 042
     Dates: start: 20110224, end: 20110328
  9. DILTIAZEM [Concomitant]
  10. ISOSORBIDE MONONITRTE [Concomitant]
  11. METOPROOL [Concomitant]
  12. VICODIN [Concomitant]
  13. CEFAZOLIN [Concomitant]
  14. MIDAZOLAM HCL [Concomitant]
  15. CEFEPIME [Concomitant]

REACTIONS (1)
  - BLOOD CREATININE INCREASED [None]
